FAERS Safety Report 5269629-5 (Version None)
Quarter: 2007Q1

REPORT INFORMATION
  Report Type: 
  Country: None (occurrence: None)
  Receive Date: 20070320
  Receipt Date: 20070309
  Transmission Date: 20070707
  Serious: Yes (Hospitalization)
  Sender: FDA-Public Use
  Company Number: HQWYE436412MAR07

PATIENT
  Sex: Male
  Weight: 67 kg

DRUGS (9)
  1. MYLOTARG [Suspect]
     Indication: ACUTE MYELOID LEUKAEMIA RECURRENT
     Route: 041
     Dates: start: 20061212, end: 20061212
  2. BAKTAR [Concomitant]
     Indication: PROPHYLAXIS
     Route: 048
     Dates: start: 20061209, end: 20061217
  3. GASTER [Concomitant]
     Indication: PROPHYLAXIS
     Route: 048
     Dates: start: 20061207, end: 20061223
  4. LENOGRASTIM [Suspect]
     Dosage: UNSPECIFIED
     Route: 065
  5. THEO-DUR [Concomitant]
     Indication: PROPHYLAXIS
     Route: 048
     Dates: start: 20061207, end: 20061223
  6. MEPTIN [Concomitant]
     Indication: PROPHYLAXIS
     Route: 048
     Dates: start: 20061207, end: 20061223
  7. LEVOFLOXACIN [Concomitant]
     Indication: PROPHYLAXIS
     Route: 048
     Dates: start: 20061208, end: 20061223
  8. DIFLUCAN [Concomitant]
     Indication: PROPHYLAXIS
     Route: 048
     Dates: start: 20061208, end: 20061223
  9. AZELASTINE HCL [Concomitant]
     Indication: PROPHYLAXIS
     Route: 048
     Dates: start: 20061207, end: 20061223

REACTIONS (7)
  - ACUTE RESPIRATORY DISTRESS SYNDROME [None]
  - ANAEMIA [None]
  - FEBRILE NEUTROPENIA [None]
  - HAEMORRHAGE [None]
  - HEPATIC FUNCTION ABNORMAL [None]
  - PLATELET COUNT DECREASED [None]
  - WHITE BLOOD CELL COUNT DECREASED [None]
